FAERS Safety Report 8078482-6 (Version None)
Quarter: 2012Q1

REPORT INFORMATION
  Report Type: 
  Country: None (occurrence: None)
  Receive Date: 20120123
  Receipt Date: 20120113
  Transmission Date: 20120608
  Serious: No
  Sender: FDA-Public Use
  Company Number: 2012-00010

PATIENT
  Age: 73 Year
  Sex: Female
  Weight: 72.5755 kg

DRUGS (2)
  1. UNKNOWN ANTIHYPERTENSIVE [Concomitant]
  2. ZICAM COLD REMEDY ORAL MIST [Suspect]
     Indication: NASOPHARYNGITIS
     Dosage: SPRAYED 3X ORALLY
     Route: 048
     Dates: start: 20120113

REACTIONS (1)
  - AGEUSIA [None]
